FAERS Safety Report 14098915 (Version 1)
Quarter: 2017Q4

REPORT INFORMATION
  Report Type: Report from Study
  Country: CA (occurrence: CA)
  Receive Date: 20171017
  Receipt Date: 20171017
  Transmission Date: 20180321
  Serious: Yes (Hospitalization, Other)
  Sender: FDA-Public Use
  Company Number: CA-GLAXOSMITHKLINE-CA2017GSK158320

PATIENT
  Sex: Female

DRUGS (9)
  1. INDOCID [Concomitant]
     Active Substance: INDOMETHACIN
     Dosage: 50 MG, TID
  2. SALBUTAMOL SULPHATE [Suspect]
     Active Substance: ALBUTEROL SULFATE
     Indication: PRODUCT USED FOR UNKNOWN INDICATION
     Route: 065
  3. ATIVAN [Concomitant]
     Active Substance: LORAZEPAM
     Dosage: 0.5 MG, PRN
     Route: 060
  4. DEPO-MEDROL [Concomitant]
     Active Substance: METHYLPREDNISOLONE ACETATE
     Dosage: 40 MG, UNK
     Route: 042
  5. AVAMYS [Suspect]
     Active Substance: FLUTICASONE FUROATE
     Indication: PRODUCT USED FOR UNKNOWN INDICATION
     Dosage: 2 UNK, UNK
     Route: 065
  6. DILTIAZEM 2% [Concomitant]
     Dosage: UNK
  7. PREVACID [Concomitant]
     Active Substance: LANSOPRAZOLE
     Dosage: 15 MG, 1D
  8. ELTROXIN [Concomitant]
     Active Substance: LEVOTHYROXINE
     Dosage: 225 UNK, UNK
  9. CIALIS [Concomitant]
     Active Substance: TADALAFIL
     Dosage: 20 MG, 1D

REACTIONS (9)
  - Respiratory distress [Recovered/Resolved]
  - Muscular weakness [Unknown]
  - Blood test abnormal [Unknown]
  - Dyspnoea [Recovered/Resolved]
  - Lung disorder [Unknown]
  - Bacterial test positive [Recovering/Resolving]
  - Mediastinal disorder [Recovered/Resolved]
  - Cough [Recovering/Resolving]
  - Oxygen saturation decreased [Recovered/Resolved]
